FAERS Safety Report 7591800-8 (Version None)
Quarter: 2011Q3

REPORT INFORMATION
  Report Type: 
  Country: None (occurrence: None)
  Receive Date: 20110706
  Receipt Date: 20110624
  Transmission Date: 20111222
  Serious: Yes (Other)
  Sender: FDA-Public Use
  Company Number: US-BAYER-2011-023939

PATIENT
  Age: 33 Year
  Sex: Female
  Weight: 99 kg

DRUGS (2)
  1. YASMIN [Suspect]
     Indication: PRODUCT USED FOR UNKNOWN INDICATION
     Dosage: UNK
     Route: 048
     Dates: start: 20020101, end: 20080101
  2. YAZ [Suspect]
     Indication: PRODUCT USED FOR UNKNOWN INDICATION
     Dosage: UNK
     Route: 048
     Dates: start: 20020101, end: 20080101

REACTIONS (4)
  - INJURY [None]
  - GENERAL PHYSICAL HEALTH DETERIORATION [None]
  - GALLBLADDER DISORDER [None]
  - PAIN [None]
